FAERS Safety Report 10644959 (Version 2)
Quarter: 2014Q4

REPORT INFORMATION
  Report Type: Spontaneous
  Country: CA (occurrence: CA)
  Receive Date: 20141211
  Receipt Date: 20141211
  Transmission Date: 20150529
  Serious: Yes (Other)
  Sender: FDA-Public Use
  Company Number: CA-UCBSA-031726

PATIENT
  Age: 56 Year
  Sex: Female
  Weight: 58.96 kg

DRUGS (5)
  1. CIMZIA [Suspect]
     Active Substance: CERTOLIZUMAB PEGOL
     Indication: RHEUMATOID ARTHRITIS
     Dosage: 400 MG, EV 4 WEEKS
     Route: 058
     Dates: start: 20110131, end: 201104
  2. PLAQUANIL [Concomitant]
     Indication: RHEUMATOID ARTHRITIS
     Dosage: 400 MG, ONCE DAILY (QD)
     Route: 048
     Dates: start: 1996
  3. ETHAMBUTOL [Concomitant]
     Active Substance: ETHAMBUTOL HYDROCHLORIDE
     Indication: TUBERCULOSIS
     Dosage: 800 MG, ONCE DAILY (QD)
     Route: 048
     Dates: start: 201012
  4. ARAVA [Concomitant]
     Active Substance: LEFLUNOMIDE
     Indication: RHEUMATOID ARTHRITIS
     Dosage: 20 MG, ONCE DAILY (QD)
     Route: 048
     Dates: start: 200811
  5. MYCOBUTIN [Concomitant]
     Active Substance: RIFABUTIN
     Indication: TUBERCULOSIS
     Dosage: 300 MG, ONCE DAILY (QD)
     Route: 048
     Dates: start: 201012

REACTIONS (1)
  - Sinusitis [Recovering/Resolving]

NARRATIVE: CASE EVENT DATE: 20110413
